FAERS Safety Report 23928851 (Version 1)
Quarter: 2024Q2

REPORT INFORMATION
  Report Type: Report from Study
  Country: CA (occurrence: CA)
  Receive Date: 20240531
  Receipt Date: 20240531
  Transmission Date: 20240715
  Serious: Yes (Other)
  Sender: FDA-Public Use
  Company Number: CA-ABBVIE-5743216

PATIENT
  Age: 81 Year
  Sex: Female

DRUGS (2)
  1. SKYRIZI [Suspect]
     Active Substance: RISANKIZUMAB-RZAA
     Indication: Crohn^s disease
     Dosage: WEEK 0, 4, AND 8
     Route: 042
     Dates: start: 20240229
  2. PREDNISONE [Concomitant]
     Active Substance: PREDNISONE
     Indication: Product used for unknown indication
     Route: 065

REACTIONS (17)
  - Loss of consciousness [Unknown]
  - Asthenia [Unknown]
  - Abdominal pain [Not Recovered/Not Resolved]
  - General physical health deterioration [Not Recovered/Not Resolved]
  - Stress [Not Recovered/Not Resolved]
  - Proctalgia [Unknown]
  - Fatigue [Recovered/Resolved]
  - Hypophagia [Unknown]
  - Abdominal pain [Recovered/Resolved]
  - Fatigue [Unknown]
  - Diarrhoea [Unknown]
  - Tremor [Unknown]
  - Unevaluable event [Unknown]
  - Somnolence [Unknown]
  - Fluid intake reduced [Unknown]
  - Tearfulness [Unknown]
  - Frequent bowel movements [Not Recovered/Not Resolved]

NARRATIVE: CASE EVENT DATE: 20240101
